FAERS Safety Report 9691000 (Version 7)
Quarter: 2017Q4

REPORT INFORMATION
  Report Type: Spontaneous
  Country: US (occurrence: US)
  Receive Date: 20131115
  Receipt Date: 20171119
  Transmission Date: 20180321
  Serious: Yes (Hospitalization, Disabling, Other)
  Sender: FDA-Public Use
  Company Number: US-009507513-1205USA04579

PATIENT
  Sex: Female
  Weight: 58.5 kg

DRUGS (5)
  1. FOSAMAX PLUS D [Suspect]
     Active Substance: ALENDRONATE SODIUM\CHOLECALCIFEROL
     Indication: OSTEOPOROSIS PROPHYLAXIS
     Dosage: 70 MG/2800 MG, UNK
     Route: 048
     Dates: start: 20080306, end: 2009
  2. FOSAMAX [Suspect]
     Active Substance: ALENDRONATE SODIUM
     Indication: OSTEOPOROSIS
     Dosage: 70 MG, QW
     Route: 048
     Dates: start: 20040223, end: 200806
  3. FOSAMAX [Suspect]
     Active Substance: ALENDRONATE SODIUM
     Indication: OSTEOPENIA
  4. NORVASC [Concomitant]
     Active Substance: AMLODIPINE BESYLATE
     Indication: HYPERTENSION
     Dosage: 5/10 MG, QD
     Route: 048
  5. FOSAMAX PLUS D [Suspect]
     Active Substance: ALENDRONATE SODIUM\CHOLECALCIFEROL
     Indication: OSTEOPENIA

REACTIONS (16)
  - Osteoma [Unknown]
  - Scoliosis [Unknown]
  - Wrist surgery [Unknown]
  - Lumbar spinal stenosis [Unknown]
  - Low turnover osteopathy [Not Recovered/Not Resolved]
  - Tendonitis [Unknown]
  - Rotator cuff syndrome [Unknown]
  - Femur fracture [Recovered/Resolved]
  - Nerve compression [Unknown]
  - Hypoaesthesia [Unknown]
  - Intramedullary rod insertion [Recovered/Resolved]
  - Post procedural haemorrhage [Unknown]
  - Paraesthesia [Unknown]
  - Crohn^s disease [Unknown]
  - Diverticulum [Unknown]
  - Spinal osteoarthritis [Unknown]

NARRATIVE: CASE EVENT DATE: 200803
